FAERS Safety Report 4379380-1 (Version None)
Quarter: 2004Q2

REPORT INFORMATION
  Report Type: 
  Country: None (occurrence: None)
  Receive Date: 20040617
  Receipt Date: 20040604
  Transmission Date: 20050107
  Serious: Yes (Hospitalization)
  Sender: FDA-Public Use
  Company Number: JP-JNJFOC-20040503808

PATIENT
  Sex: Male
  Weight: 67 kg

DRUGS (15)
  1. REMICADE [Suspect]
     Route: 041
     Dates: start: 20040224
  2. REMICADE [Suspect]
     Route: 041
     Dates: start: 20040224
  3. REMICADE [Suspect]
     Indication: RHEUMATOID ARTHRITIS
     Route: 041
     Dates: start: 20040224
  4. METHOTREXATE [Concomitant]
     Route: 049
  5. METHOTREXATE [Concomitant]
     Route: 049
  6. PREDONINE [Concomitant]
     Route: 049
  7. PREDONINE [Concomitant]
     Route: 049
  8. AZULFIDINE [Concomitant]
     Route: 049
  9. VOLTAREN [Concomitant]
     Route: 049
  10. ETODOLAC [Concomitant]
     Route: 049
  11. LOXONIN [Concomitant]
     Route: 049
  12. VOLTAREN-XR [Concomitant]
     Route: 049
  13. FOLIAMIN [Concomitant]
     Route: 049
  14. SELBEX [Concomitant]
     Route: 049
  15. GASTER [Concomitant]
     Route: 049

REACTIONS (12)
  - ATELECTASIS [None]
  - DRUG INEFFECTIVE [None]
  - ERYTHEMA [None]
  - HAEMATOMA [None]
  - HAEMOTHORAX [None]
  - HEPATITIS B [None]
  - INFUSION SITE REACTION [None]
  - PLEURAL ADHESION [None]
  - PLEURAL EFFUSION [None]
  - PNEUMONIA [None]
  - PYREXIA [None]
  - TUBERCULOUS PLEURISY [None]
